FAERS Safety Report 22068292 (Version 3)
Quarter: 2023Q2

REPORT INFORMATION
  Report Type: Spontaneous
  Country: UZ (occurrence: None)
  Receive Date: 20230307
  Receipt Date: 20230406
  Transmission Date: 20230722
  Serious: Yes (Other)
  Sender: FDA-Public Use
  Company Number: UZ-ROCHE-3300088

PATIENT
  Age: 50 Year
  Sex: Female

DRUGS (1)
  1. HERCEPTIN [Suspect]
     Active Substance: TRASTUZUMAB
     Indication: HER2 positive breast cancer
     Route: 065
     Dates: start: 20230210, end: 20230303

REACTIONS (6)
  - Depressed level of consciousness [Recovered/Resolved]
  - Hyperthermia [Recovered/Resolved]
  - Tremor [Recovered/Resolved]
  - Chills [Recovered/Resolved]
  - Suspected counterfeit product [Unknown]
  - Off label use [Unknown]
